FAERS Safety Report 6805319-2 (Version None)
Quarter: 2010Q2

REPORT INFORMATION
  Report Type: 
  Country: None (occurrence: None)
  Receive Date: 20100628
  Receipt Date: 20071026
  Transmission Date: 20101027
  Serious: Yes (Other)
  Sender: FDA-Public Use
  Company Number: US-PFIZER INC-2007090950

PATIENT
  Sex: Female

DRUGS (2)
  1. GEODON [Suspect]
  2. THORAZINE [Concomitant]

REACTIONS (2)
  - LABORATORY TEST ABNORMAL [None]
  - NEUROLEPTIC MALIGNANT SYNDROME [None]
